FAERS Safety Report 25275860 (Version 2)
Quarter: 2025Q2

REPORT INFORMATION
  Report Type: Spontaneous
  Country: CH (occurrence: CH)
  Receive Date: 20250507
  Receipt Date: 20250529
  Transmission Date: 20250716
  Serious: No
  Sender: JOHNSON AND JOHNSON
  Company Number: CH-JNJFOC-20250427194

PATIENT
  Sex: Female

DRUGS (1)
  1. SIMPONI [Suspect]
     Active Substance: GOLIMUMAB
     Indication: Product used for unknown indication
     Route: 058

REACTIONS (4)
  - Injection site pain [Unknown]
  - Underdose [Unknown]
  - Device deployment issue [Unknown]
  - Therapeutic response decreased [Unknown]
